FAERS Safety Report 6736226-1 (Version None)
Quarter: 2010Q2

REPORT INFORMATION
  Report Type: 
  Country: None (occurrence: None)
  Receive Date: 20100521
  Receipt Date: 20100512
  Transmission Date: 20101027
  Serious: Yes (Death, Life-Threatening, Other)
  Sender: FDA-Public Use
  Company Number: US-JNJFOC-20071007549

PATIENT
  Sex: Male
  Weight: 70 kg

DRUGS (17)
  1. REMICADE [Suspect]
     Indication: RHEUMATOID ARTHRITIS
     Route: 042
  2. REMICADE [Suspect]
     Indication: VASCULITIS
     Route: 042
  3. CYTOXAN [Suspect]
     Indication: RHEUMATOID VASCULITIS
     Route: 048
  4. CYTOXAN [Suspect]
     Route: 048
  5. PLAQUENIL [Suspect]
     Indication: DRUG USE FOR UNKNOWN INDICATION
  6. PLAQUENIL [Suspect]
  7. PREDNISONE [Suspect]
     Indication: VASCULITIS
  8. PREDNISONE [Suspect]
  9. COLCHICINE [Suspect]
     Indication: DRUG USE FOR UNKNOWN INDICATION
  10. FLECAINIDE ACETATE [Concomitant]
  11. HYTRIN [Concomitant]
  12. ATENOLOL [Concomitant]
  13. POTASSIUM [Concomitant]
  14. LASIX [Concomitant]
  15. ASPIRIN [Concomitant]
     Indication: PROPHYLAXIS
  16. THEO-DUR [Concomitant]
     Indication: CHRONIC OBSTRUCTIVE PULMONARY DISEASE
  17. RESTORIL [Concomitant]
     Indication: SLEEP DISORDER

REACTIONS (4)
  - HEMIPARESIS [None]
  - MULTI-ORGAN FAILURE [None]
  - PROGRESSIVE MULTIFOCAL LEUKOENCEPHALOPATHY [None]
  - RESPIRATORY FAILURE [None]
